FAERS Safety Report 6696965-8 (Version None)
Quarter: 2010Q2

REPORT INFORMATION
  Report Type: 
  Country: None (occurrence: None)
  Receive Date: 20100426
  Receipt Date: 20100421
  Transmission Date: 20101027
  Serious: Yes (Death, Hospitalization, Other)
  Sender: FDA-Public Use
  Company Number: PHHY2010JP20818

PATIENT
  Sex: Male

DRUGS (9)
  1. DIOVAN [Suspect]
     Dosage: 40 MG, BID
     Route: 048
     Dates: start: 20080226, end: 20091003
  2. PLETAL [Suspect]
     Dosage: 100 MG, QD
     Route: 048
     Dates: start: 20070224, end: 20090203
  3. ATELEC [Concomitant]
     Indication: HYPERTENSION
     Dosage: 10 MG, UNK
     Route: 048
     Dates: start: 20080226, end: 20080326
  4. ADALAT [Concomitant]
     Indication: HYPERTENSION
     Dosage: 40 MG, UNK
     Route: 048
     Dates: start: 20080327, end: 20091003
  5. ADALAT [Concomitant]
     Dosage: 20 MG, UNK
     Route: 048
     Dates: start: 20080327
  6. ADALAT [Concomitant]
     Dosage: 40 MG, UNK
     Route: 048
     Dates: start: 20080327
  7. PLAVIX [Concomitant]
     Dosage: 75 MG, UNK
     Route: 048
     Dates: start: 20090323
  8. TAMIFLU [Concomitant]
     Dosage: 150 MG, UNK
     Route: 048
     Dates: start: 20091003, end: 20091008
  9. CALONAL [Concomitant]
     Dosage: 200 MG, UNK
     Route: 048
     Dates: start: 20091003, end: 20091005

REACTIONS (4)
  - ACUTE MYOCARDIAL INFARCTION [None]
  - INFLUENZA [None]
  - PYREXIA [None]
  - TACHYCARDIA [None]
